FAERS Safety Report 20383316 (Version 23)
Quarter: 2023Q4

REPORT INFORMATION
  Report Type: Spontaneous
  Country: IN (occurrence: IN)
  Receive Date: 20220127
  Receipt Date: 20231208
  Transmission Date: 20240110
  Serious: Yes (Other)
  Sender: FDA-Public Use
  Company Number: IN-PFIZER INC-2021557518

PATIENT
  Age: 71 Year
  Sex: Female
  Weight: 71 kg

DRUGS (19)
  1. PALBOCICLIB [Suspect]
     Active Substance: PALBOCICLIB
     Indication: Breast cancer metastatic
     Dosage: 125 MG, 1X/DAY
     Route: 048
     Dates: start: 20210409
  2. PALBOCICLIB [Suspect]
     Active Substance: PALBOCICLIB
     Dosage: ONCE A DAY FOR 21 DAYS AND 7 DAYS OFF
     Route: 048
     Dates: start: 20210412
  3. PALBOCICLIB [Suspect]
     Active Substance: PALBOCICLIB
     Dosage: ONCE A DAY FOR 21 DAYS AND 7 DAYS OFF
     Route: 048
  4. PALBOCICLIB [Suspect]
     Active Substance: PALBOCICLIB
     Dosage: 100 MG, 1X/DAY
     Route: 048
  5. LETROZOLE [Concomitant]
     Active Substance: LETROZOLE
     Dosage: 2.5 MG
     Dates: start: 20210409
  6. PANTOPRAZOLE SODIUM [Concomitant]
     Active Substance: PANTOPRAZOLE SODIUM
     Dosage: 40 MG, 1X/DAY
  7. CALCION [Concomitant]
     Dosage: UNK (K2: 7 BD)
  8. CALCION [Concomitant]
     Dosage: 1 DF, 2X/DAY
  9. FOL [Concomitant]
     Dosage: UNK, 1X/DAY FOR ONE MONTH
  10. SPORLAC [Concomitant]
     Dosage: UNK, 2X/DAY (SACHET IN 100ML WATER)
  11. ZOLEDRONIC ACID [Concomitant]
     Active Substance: ZOLEDRONIC ACID
     Dosage: UNK (4MF IV ON 100ML NS OVER 30 MIN)
     Route: 042
  12. GRILINCTUS [AMMONIUM CHLORIDE;CHLORPHENAMINE MALEATE;DEXTROMETHORPHAN [Concomitant]
     Dosage: UNK
  13. PEGASTA [Concomitant]
     Dosage: 6 MG
     Route: 058
  14. CALCION D3 [Concomitant]
     Dosage: 60000 IU
     Dates: start: 20210409
  15. RABEL D [Concomitant]
     Dosage: UNK, 1X/DAY (OD X 3WEEKS)
  16. DENTOGEL [Concomitant]
     Dosage: UNK
  17. AMBROXIL [Concomitant]
     Dosage: UNK
  18. DAYVIT [Concomitant]
     Dosage: UNK
     Dates: start: 20210409
  19. ZOLEBENZ [Concomitant]
     Dosage: 4 MG (4 MG IN 100ML NS OVER 30MIN)

REACTIONS (35)
  - Haemorrhage [Unknown]
  - Pulmonary fibrosis [Unknown]
  - Neutrophil count decreased [Not Recovered/Not Resolved]
  - Neoplasm progression [Unknown]
  - Pain [Unknown]
  - Dyspnoea [Recovering/Resolving]
  - Dyspnoea exertional [Recovering/Resolving]
  - Cough [Recovering/Resolving]
  - Fatigue [Recovered/Resolved]
  - White blood cell count decreased [Not Recovered/Not Resolved]
  - Pharyngitis [Unknown]
  - Pleural effusion [Unknown]
  - Pruritus [Unknown]
  - Dry skin [Unknown]
  - Haemoglobin decreased [Unknown]
  - Neck pain [Unknown]
  - Back pain [Unknown]
  - Platelet count decreased [Unknown]
  - Full blood count abnormal [Unknown]
  - Lymphadenopathy [Unknown]
  - Pleural thickening [Unknown]
  - Lymphadenopathy mediastinal [Unknown]
  - Thyroid calcification [Unknown]
  - Soft tissue disorder [Unknown]
  - Renal cyst [Unknown]
  - Osteosclerosis [Unknown]
  - Neutrophil count increased [Unknown]
  - Neutrophil percentage decreased [Unknown]
  - Productive cough [Unknown]
  - Haemophilus test positive [Unknown]
  - Diarrhoea [Unknown]
  - Arthralgia [Unknown]
  - Nausea [Unknown]
  - Mouth ulceration [Unknown]
  - Hypertension [Unknown]

NARRATIVE: CASE EVENT DATE: 20210101
